FAERS Safety Report 16390532 (Version 6)
Quarter: 2019Q3

REPORT INFORMATION
  Report Type: Report from Study
  Country: SI (occurrence: SI)
  Receive Date: 20190604
  Receipt Date: 20190918
  Transmission Date: 20191004
  Serious: Yes (Hospitalization, Other)
  Sender: FDA-Public Use
  Company Number: US-BAYER-2019-101561

PATIENT
  Age: 66 Year
  Sex: Male

DRUGS (12)
  1. STIVARGA [Suspect]
     Active Substance: REGORAFENIB
     Indication: GASTROINTESTINAL STROMAL TUMOUR
     Dosage: UNK
     Dates: start: 20190513, end: 20190528
  2. REGLAN [Concomitant]
     Active Substance: METOCLOPRAMIDE HYDROCHLORIDE
     Dosage: 10 MG, TID
  3. KALINOR [POTASSIUM BICARBONATE;POTASSIUM CITRATE] [Concomitant]
     Dosage: 1 TAB DAILY
  4. MAGNESIUM [Suspect]
     Active Substance: MAGNESIUM
     Dosage: 1 TAB DAILY
  5. CREATININE [Concomitant]
     Active Substance: CREATININE
     Dosage: UNK
     Dates: start: 20190525
  6. ASPIRIN [ACETYLSALICYLIC ACID] [Concomitant]
     Active Substance: ASPIRIN
     Dosage: 100 MG DAILY
  7. LANZUL [Concomitant]
     Active Substance: LANSOPRAZOLE
     Dosage: 300 MG, QD
  8. CREATININE [Concomitant]
     Active Substance: CREATININE
     Dosage: UNK
  9. STIVARGA [Suspect]
     Active Substance: REGORAFENIB
     Indication: COLORECTAL CANCER METASTATIC
     Dosage: DAILY DOSE 80 MG
     Route: 048
     Dates: start: 20190611
  10. ANALGIN [METAMIZOLE SODIUM MONOHYDRATE] [Concomitant]
     Dosage: 500 MG, TID 3X2 TAB. DAILY
  11. AMLEWEL [Concomitant]
     Dosage: 8MG/10MG/2,5,MG 1 TAB. DAILY
  12. BLOXAN [Concomitant]
     Active Substance: METOPROLOL TARTRATE
     Dosage: 50 MG DAILY

REACTIONS (11)
  - Pain in extremity [Not Recovered/Not Resolved]
  - Fatigue [Not Recovered/Not Resolved]
  - Decreased appetite [Not Recovered/Not Resolved]
  - Hypertension [Recovering/Resolving]
  - Tachycardia [Not Recovered/Not Resolved]
  - Abdominal pain [Not Recovered/Not Resolved]
  - Skin papilloma [Not Recovered/Not Resolved]
  - Weight decreased [Not Recovered/Not Resolved]
  - Acute kidney injury [Not Recovered/Not Resolved]
  - Vomiting [Not Recovered/Not Resolved]
  - Skin reaction [Recovering/Resolving]

NARRATIVE: CASE EVENT DATE: 201905
